FAERS Safety Report 5797334-5 (Version None)
Quarter: 2008Q3

REPORT INFORMATION
  Report Type: 
  Country: None (occurrence: None)
  Receive Date: 20080701
  Receipt Date: 20080620
  Transmission Date: 20090109
  Serious: Yes (Other)
  Sender: FDA-Public Use
  Company Number: US-PFIZER INC-2008053406

PATIENT
  Sex: Female

DRUGS (2)
  1. DEPO-PROVERA SUSPENSION/INJ [Suspect]
     Dosage: FREQ:FIRST INJECTION
     Dates: start: 20010101, end: 20010101
  2. DEPO-PROVERA SUSPENSION/INJ [Suspect]
     Dosage: FREQ:LAST INJECTION
     Dates: start: 20030101, end: 20030101

REACTIONS (2)
  - BONE DENSITY DECREASED [None]
  - RIB FRACTURE [None]
